FAERS Safety Report 6654901-4 (Version None)
Quarter: 2010Q1

REPORT INFORMATION
  Report Type: 
  Country: None (occurrence: None)
  Receive Date: 20100329
  Receipt Date: 20100318
  Transmission Date: 20100710
  Serious: Yes (Hospitalization)
  Sender: FDA-Public Use
  Company Number: US-BIOGENIDEC-2010BI008081

PATIENT
  Age: 52 Year
  Sex: Female

DRUGS (3)
  1. TYSABRI [Suspect]
     Indication: MULTIPLE SCLEROSIS
     Route: 042
     Dates: start: 20080724, end: 20100201
  2. ELAVIL [Concomitant]
  3. CYMBALTA [Concomitant]
     Indication: MOOD SWINGS

REACTIONS (5)
  - CANDIDIASIS [None]
  - DRUG DELIVERY DEVICE IMPLANTATION [None]
  - MULTIPLE SCLEROSIS RELAPSE [None]
  - PNEUMONIA [None]
  - URINARY RETENTION [None]
